FAERS Safety Report 10428482 (Version 1)
Quarter: 2014Q3

REPORT INFORMATION
  Report Type: Spontaneous
  Country: IT (occurrence: IT)
  Receive Date: 20140903
  Receipt Date: 20140903
  Transmission Date: 20150326
  Serious: Yes (Other)
  Sender: FDA-Public Use
  Company Number: IT-ABBVIE-14P-083-1279092-00

PATIENT
  Age: 2 Year
  Sex: Female

DRUGS (1)
  1. MACLADIN [Suspect]
     Active Substance: CLARITHROMYCIN
     Indication: PYREXIA
     Dosage: 1 UNIT DAILY, FORM STRENGTH: 125 MG/5 ML
     Route: 048
     Dates: start: 20140808, end: 20140812

REACTIONS (1)
  - Erythema multiforme [Recovering/Resolving]

NARRATIVE: CASE EVENT DATE: 20140812
